FAERS Safety Report 10020401 (Version 1)
Quarter: 2014Q1

REPORT INFORMATION
  Report Type: Spontaneous
  Country: US (occurrence: US)
  Receive Date: 20140319
  Receipt Date: 20140319
  Transmission Date: 20141002
  Serious: No
  Sender: FDA-Public Use
  Company Number: US-BIOGENIDEC-2014BI022418

PATIENT
  Sex: Female

DRUGS (8)
  1. TECFIDERA [Suspect]
     Indication: MULTIPLE SCLEROSIS
  2. TOPAMAX [Concomitant]
  3. SINGULAIR [Concomitant]
  4. DULERA [Concomitant]
  5. CELEBREX [Concomitant]
  6. SYNTHROID [Concomitant]
  7. VITAMIN B [Concomitant]
  8. VITAMIN D [Concomitant]

REACTIONS (1)
  - Fatigue [Unknown]
